FAERS Safety Report 8771765 (Version 1)
Quarter: 2012Q4

REPORT INFORMATION
  Report Type: Report from Study
  Country: JP (occurrence: JP)
  Receive Date: 20120906
  Receipt Date: 20120906
  Transmission Date: 20130627
  Serious: Yes (Other)
  Sender: FDA-Public Use
  Company Number: JP-VERTEX PHARMACEUTICAL INC.-2012-020636

PATIENT
  Age: 48 Year
  Sex: Male

DRUGS (10)
  1. VX-950 [Suspect]
     Indication: HEPATITIS C
     Dosage: 2250 mg, qd
     Route: 048
     Dates: start: 20120514, end: 20120805
  2. RIBAVIRIN [Suspect]
     Indication: HEPATITIS C
     Dosage: 800 mg, qd
     Route: 048
     Dates: start: 20120514, end: 20120702
  3. RIBAVIRIN [Suspect]
     Dosage: 600 mg, qd
     Route: 048
     Dates: start: 20120703, end: 20120730
  4. RIBAVIRIN [Suspect]
     Dosage: 400 mg, qd
     Route: 048
     Dates: start: 20120731
  5. PEGINTERFERON ALFA-2B [Suspect]
     Indication: HEPATITIS C
     Dosage: 1.3 UNK, UNK
     Route: 058
     Dates: start: 20120514
  6. URSO                               /00465701/ [Concomitant]
     Dosage: 600 mg, qd
     Route: 048
     Dates: end: 20120520
  7. ALEROFF [Concomitant]
     Dosage: 20 mg, qd
     Route: 048
     Dates: start: 20120514, end: 20120522
  8. MYSLEE [Concomitant]
     Dosage: 5 mg, qd
     Route: 048
     Dates: start: 20120605, end: 20120624
  9. RABEPRAZOLE [Concomitant]
     Dosage: 10 mg, qd
     Route: 048
     Dates: start: 20120612
  10. BENZALIN [Concomitant]
     Dosage: 5 mg, qd
     Route: 048
     Dates: start: 20120619, end: 20120628

REACTIONS (1)
  - Erythema multiforme [Recovered/Resolved]
